FAERS Safety Report 8329958-5 (Version None)
Quarter: 2012Q2

REPORT INFORMATION
  Report Type: 
  Country: None (occurrence: None)
  Receive Date: 20120502
  Receipt Date: 20120424
  Transmission Date: 20120825
  Serious: Yes (Other)
  Sender: FDA-Public Use
  Company Number: US-JNJFOC-20120411698

PATIENT
  Age: 59 Year
  Sex: Female
  Weight: 77.11 kg

DRUGS (2)
  1. VISINE EYE DROPS [Suspect]
     Indication: DRY EYE
     Dosage: 1 OR 2 DROPS IN EACH EYE
     Route: 047
     Dates: start: 20120418, end: 20120419
  2. UNKNOWN MEDICATION [Concomitant]
     Route: 047

REACTIONS (1)
  - CHEMICAL INJURY [None]
